FAERS Safety Report 21030023 (Version 1)
Quarter: 2022Q3

REPORT INFORMATION
  Report Type: Spontaneous
  Country: US (occurrence: None)
  Receive Date: 20220701
  Receipt Date: 20220701
  Transmission Date: 20221027
  Serious: No
  Sender: FDA-Public Use
  Company Number: US-ROCHE-2866650

PATIENT
  Age: 20 Year
  Sex: Female
  Weight: 55.3 kg

DRUGS (12)
  1. ACTEMRA [Suspect]
     Active Substance: TOCILIZUMAB
     Indication: Juvenile idiopathic arthritis
     Route: 058
     Dates: start: 20210224
  2. ACTEMRA [Suspect]
     Active Substance: TOCILIZUMAB
  3. ACTEMRA [Suspect]
     Active Substance: TOCILIZUMAB
  4. ACTEMRA [Suspect]
     Active Substance: TOCILIZUMAB
     Indication: Rheumatoid arthritis
     Route: 058
     Dates: start: 20210209, end: 20210601
  5. ACTEMRA [Suspect]
     Active Substance: TOCILIZUMAB
  6. ACTEMRA [Suspect]
     Active Substance: TOCILIZUMAB
  7. METHOTREXATE [Concomitant]
     Active Substance: METHOTREXATE
     Indication: Juvenile idiopathic arthritis
     Route: 058
     Dates: start: 20190701
  8. METHOTREXATE [Concomitant]
     Active Substance: METHOTREXATE
     Route: 058
  9. NAPROXEN [Concomitant]
     Active Substance: NAPROXEN
     Indication: Juvenile idiopathic arthritis
     Route: 048
     Dates: start: 20191226
  10. FLUTICASONE [Concomitant]
     Active Substance: FLUTICASONE
  11. LEUCOVORIN [Concomitant]
     Active Substance: LEUCOVORIN
     Route: 048
  12. PREDNISONE [Concomitant]
     Active Substance: PREDNISONE
     Route: 048

REACTIONS (7)
  - Injection site reaction [Recovered/Resolved]
  - Swelling [Unknown]
  - Erythema [Unknown]
  - Blister [Unknown]
  - Sunburn [Unknown]
  - Pruritus [Unknown]
  - Rash [Unknown]

NARRATIVE: CASE EVENT DATE: 20210328
